FAERS Safety Report 7895897-7 (Version None)
Quarter: 2011Q4

REPORT INFORMATION
  Report Type: 
  Country: None (occurrence: None)
  Receive Date: 20111102
  Receipt Date: 20111018
  Transmission Date: 20120403
  Serious: Yes (Life-Threatening)
  Sender: FDA-Public Use
  Company Number: US-2011-10778

PATIENT
  Age: 52 Year
  Sex: Male
  Weight: 83 kg

DRUGS (4)
  1. CYCLOPHOSPHAMIDE [Concomitant]
  2. BUSULFAN [Suspect]
     Indication: NON-HODGKIN'S LYMPHOMA
     Dosage: 63.44 MG MILLIGRAM(S), DAILY DOSE, INTRAVENOUS; 208 MG MILLIGRAMS(S), DAILY DOSE, INTRAVENOUS
     Route: 042
     Dates: start: 20110915, end: 20110915
  3. BUSULFAN [Suspect]
     Indication: NON-HODGKIN'S LYMPHOMA
     Dosage: 63.44 MG MILLIGRAM(S), DAILY DOSE, INTRAVENOUS; 208 MG MILLIGRAMS(S), DAILY DOSE, INTRAVENOUS
     Route: 042
     Dates: start: 20110921, end: 20110924
  4. ETOPOSIDE [Concomitant]

REACTIONS (14)
  - DRY MOUTH [None]
  - CHEST PAIN [None]
  - TRICUSPID VALVE INCOMPETENCE [None]
  - PNEUMONIA [None]
  - NASAL DRYNESS [None]
  - RENAL FAILURE [None]
  - PULMONARY OEDEMA [None]
  - SEDATION [None]
  - HEPATIC ISCHAEMIA [None]
  - MYOCARDIAL INFARCTION [None]
  - PERICARDIAL EFFUSION [None]
  - EJECTION FRACTION DECREASED [None]
  - SOMNOLENCE [None]
  - MITRAL VALVE INCOMPETENCE [None]
